FAERS Safety Report 5809501-2 (Version None)
Quarter: 2008Q3

REPORT INFORMATION
  Report Type: 
  Country: None (occurrence: None)
  Receive Date: 20080715
  Receipt Date: 20080702
  Transmission Date: 20090109
  Serious: Yes (Hospitalization)
  Sender: FDA-Public Use
  Company Number: FR-ELI_LILLY_AND_COMPANY-FR200807001066

PATIENT
  Age: 67 Year
  Sex: Female

DRUGS (4)
  1. FORTEO [Suspect]
     Indication: OSTEOPOROSIS
     Dosage: 20 UG, DAILY (1/D)
     Route: 058
     Dates: start: 20070901
  2. RIVOTRIL [Concomitant]
     Dosage: UNK, UNKNOWN
     Route: 065
  3. DOLIPRANE [Concomitant]
     Dosage: UNK, UNKNOWN
     Route: 065
  4. LAMALINE [Concomitant]
     Dosage: UNK, UNKNOWN
     Route: 065

REACTIONS (3)
  - BACK PAIN [None]
  - FALL [None]
  - RESTLESS LEGS SYNDROME [None]
